FAERS Safety Report 6920768-X (Version None)
Quarter: 2010Q3

REPORT INFORMATION
  Report Type: 
  Country: None (occurrence: None)
  Receive Date: 20100812
  Receipt Date: 20100804
  Transmission Date: 20110219
  Serious: Yes (Other)
  Sender: FDA-Public Use
  Company Number: US-JNJFOC-20100801704

PATIENT
  Sex: Male

DRUGS (3)
  1. HALDOL [Suspect]
     Indication: SCHIZOPHRENIA
     Route: 065
  2. HALDOL [Suspect]
     Route: 048
  3. FANAPT TITRATION PACK [Suspect]
     Indication: SCHIZOPHRENIA
     Route: 065

REACTIONS (2)
  - DRUG INEFFECTIVE [None]
  - DYSARTHRIA [None]
